FAERS Safety Report 25755073 (Version 1)
Quarter: 2025Q3

REPORT INFORMATION
  Report Type: Spontaneous
  Country: CA (occurrence: CA)
  Receive Date: 20250903
  Receipt Date: 20250903
  Transmission Date: 20251020
  Serious: Yes (Life-Threatening, Hospitalization, Other)
  Sender: TEVA
  Company Number: CA-TEVA-VS-3368847

PATIENT
  Sex: Female

DRUGS (1)
  1. BUPRENORPHINE\NALOXONE [Suspect]
     Active Substance: BUPRENORPHINE\NALOXONE
     Indication: Drug dependence
     Route: 060

REACTIONS (6)
  - Tooth loss [Unknown]
  - Maxillofacial space infection [Unknown]
  - Poor dental condition [Unknown]
  - Tooth infection [Unknown]
  - Tooth fracture [Unknown]
  - Tooth extraction [Unknown]
